FAERS Safety Report 15555338 (Version 1)
Quarter: 2018Q4

REPORT INFORMATION
  Report Type: Other
  Country: NL (occurrence: NL)
  Receive Date: 20181026
  Receipt Date: 20181026
  Transmission Date: 20190205
  Serious: Yes (Life-Threatening, Other)
  Sender: FDA-Public Use
  Company Number: NL-APOTEX-2018AP023176

PATIENT
  Age: 18 Year
  Sex: Female
  Weight: 60 kg

DRUGS (2)
  1. PARACETAMOL [Suspect]
     Active Substance: ACETAMINOPHEN
     Indication: PRODUCT USED FOR UNKNOWN INDICATION
     Dosage: 9 G, UNK
     Route: 054
  2. PARACETAMOL [Suspect]
     Active Substance: ACETAMINOPHEN
     Dosage: 2.5 G, UNK
     Route: 048

REACTIONS (3)
  - Suicide attempt [Unknown]
  - Intentional overdose [Unknown]
  - Toxicity to various agents [Unknown]
